FAERS Safety Report 5444461-8 (Version None)
Quarter: 2007Q3

REPORT INFORMATION
  Report Type: 
  Country: None (occurrence: None)
  Receive Date: 20070831
  Receipt Date: 20070823
  Transmission Date: 20080115
  Serious: No
  Sender: FDA-Public Use
  Company Number: 2007329632

PATIENT
  Age: 12 Month
  Sex: Male

DRUGS (1)
  1. DIPHENHYDRAMINE HCL [Suspect]
     Dosage: ESTIMATED 32 PILLS AT ONCE (50 MG), ORAL
     Route: 048

REACTIONS (7)
  - ACCIDENTAL OVERDOSE [None]
  - BRADYCARDIA [None]
  - CARDIAC ARREST [None]
  - HYPOTENSION [None]
  - SINUS TACHYCARDIA [None]
  - STATUS EPILEPTICUS [None]
  - VOMITING [None]
